FAERS Safety Report 8790821 (Version 1)
Quarter: 2012Q4

REPORT INFORMATION
  Report Type: Spontaneous
  Country: DE (occurrence: None)
  Receive Date: 20120907
  Receipt Date: 20120907
  Transmission Date: 20130627
  Serious: Yes (Other)
  Sender: FDA-Public Use
  Company Number: 2012ZX000309

PATIENT

DRUGS (2)
  1. SUMATRIPTAN [Suspect]
     Indication: MIGRAINE
     Dates: start: 20110609, end: 20111007
  2. FOLOC ACID FORTE [Concomitant]

REACTIONS (2)
  - Abortion induced [None]
  - Maternal exposure during pregnancy [None]
